FAERS Safety Report 5393017-4 (Version None)
Quarter: 2007Q3

REPORT INFORMATION
  Report Type: 
  Country: None (occurrence: None)
  Receive Date: 20070719
  Receipt Date: 20070703
  Transmission Date: 20080115
  Serious: Yes (Hospitalization)
  Sender: FDA-Public Use
  Company Number: 8024882

PATIENT

DRUGS (1)
  1. KEPPRA [Suspect]

REACTIONS (1)
  - RESPIRATORY DEPRESSION [None]
